FAERS Safety Report 6136336-6 (Version None)
Quarter: 2009Q1

REPORT INFORMATION
  Report Type: 
  Country: None (occurrence: None)
  Receive Date: 20090330
  Receipt Date: 20090323
  Transmission Date: 20090719
  Serious: Yes (Hospitalization)
  Sender: FDA-Public Use
  Company Number: PL-AMGEN-UK334314

PATIENT
  Sex: Male

DRUGS (1)
  1. PANITUMUMAB [Suspect]
     Indication: COLORECTAL CANCER
     Route: 042
     Dates: start: 20070104

REACTIONS (4)
  - DRUG TOXICITY [None]
  - DYSPHAGIA [None]
  - MUCOSAL INFLAMMATION [None]
  - STOMATITIS [None]
